FAERS Safety Report 9330696 (Version 1)
Quarter: 2013Q2

REPORT INFORMATION
  Report Type: Spontaneous
  Country: US (occurrence: None)
  Receive Date: 20130604
  Receipt Date: 20130604
  Transmission Date: 20140414
  Serious: No
  Sender: FDA-Public Use
  Company Number: None

PATIENT
  Age: 66 Year
  Sex: Male

DRUGS (1)
  1. FORTEO 20MCG LILLY [Suspect]
     Indication: OSTEOPOROSIS
     Route: 058
     Dates: start: 20121001, end: 20130412

REACTIONS (5)
  - Drug hypersensitivity [None]
  - Abnormal dreams [None]
  - Psychotic disorder [None]
  - Burning sensation [None]
  - Bone disorder [None]
